FAERS Safety Report 5525176-4 (Version None)
Quarter: 2007Q4

REPORT INFORMATION
  Report Type: 
  Country: None (occurrence: None)
  Receive Date: 20071126
  Receipt Date: 20071121
  Transmission Date: 20080405
  Serious: Yes (Life-Threatening, Hospitalization)
  Sender: FDA-Public Use
  Company Number: GB-NOVOPROD-268668

PATIENT
  Age: 57 Year
  Sex: Female
  Weight: 75 kg

DRUGS (2)
  1. NOVORAPID [Suspect]
     Indication: TYPE 2 DIABETES MELLITUS
     Dosage: 30 IU, QD
     Dates: start: 20050101, end: 20071019
  2. LEVEMIR [Suspect]
     Indication: TYPE 2 DIABETES MELLITUS

REACTIONS (3)
  - DYSPNOEA [None]
  - ERYTHEMA [None]
  - PARAESTHESIA [None]
